FAERS Safety Report 6711910-4 (Version None)
Quarter: 2010Q2

REPORT INFORMATION
  Report Type: 
  Country: None (occurrence: None)
  Receive Date: 20100505
  Receipt Date: 20100428
  Transmission Date: 20101027
  Serious: Yes (Other)
  Sender: FDA-Public Use
  Company Number: US-MERCK-1004USA04562

PATIENT
  Sex: Female

DRUGS (3)
  1. EMEND [Suspect]
     Indication: PROPHYLAXIS OF NAUSEA AND VOMITING
     Route: 048
     Dates: start: 20100401, end: 20100401
  2. EMEND [Suspect]
     Route: 048
     Dates: start: 20100401, end: 20100427
  3. COMPAZINE [Concomitant]
     Route: 065

REACTIONS (1)
  - TARDIVE DYSKINESIA [None]
